FAERS Safety Report 5408510-5 (Version None)
Quarter: 2007Q3

REPORT INFORMATION
  Report Type: 
  Country: None (occurrence: None)
  Receive Date: 20070806
  Receipt Date: 20070716
  Transmission Date: 20080115
  Serious: Yes (Death, Other)
  Sender: FDA-Public Use
  Company Number: 2007US001806

PATIENT
  Age: 53 Year
  Sex: Female

DRUGS (2)
  1. PROGRAF [Suspect]
     Indication: GRAFT VERSUS HOST DISEASE
  2. METHOTREXATE       METHOTREXATE SODIUM [Concomitant]

REACTIONS (5)
  - ACUTE GRAFT VERSUS HOST DISEASE IN INTESTINE [None]
  - ACUTE GRAFT VERSUS HOST DISEASE IN SKIN [None]
  - CYTOMEGALOVIRUS INFECTION [None]
  - DIARRHOEA [None]
  - PNEUMONIA CYTOMEGALOVIRAL [None]
